FAERS Safety Report 5392120-2 (Version None)
Quarter: 2007Q3

REPORT INFORMATION
  Report Type: 
  Country: None (occurrence: None)
  Receive Date: 20070720
  Receipt Date: 20070711
  Transmission Date: 20080115
  Serious: Yes (Death, Hospitalization, Other)
  Sender: FDA-Public Use
  Company Number: GB-JNJFOC-20070403062

PATIENT
  Sex: Male
  Weight: 75 kg

DRUGS (6)
  1. REMICADE [Suspect]
     Indication: RHEUMATOID ARTHRITIS
     Route: 042
  2. METHOTREXATE SODIUM [Concomitant]
  3. PREDNISOLONE [Concomitant]
  4. FLUOXETINE [Concomitant]
  5. FOLIC ACID [Concomitant]
  6. RAMIPRIL [Concomitant]

REACTIONS (2)
  - METASTASES TO LIVER [None]
  - NEOPLASM MALIGNANT [None]
